FAERS Safety Report 10798600 (Version 3)
Quarter: 2015Q2

REPORT INFORMATION
  Report Type: Spontaneous
  Country: JP (occurrence: JP)
  Receive Date: 20150216
  Receipt Date: 20150406
  Transmission Date: 20150821
  Serious: Yes (Other)
  Sender: FDA-Public Use
  Company Number: JP-GLAXOSMITHKLINE-JP2015JPN016957

PATIENT
  Age: 38 Year
  Sex: Male
  Weight: 76 kg

DRUGS (7)
  1. PREDONINE [Concomitant]
     Active Substance: PREDNISOLONE\PREDNISOLONE ACETATE\PREDNISOLONE SODIUM SUCCINATE
  2. WAKOBITAL [Concomitant]
  3. LAMICTAL [Suspect]
     Active Substance: LAMOTRIGINE
     Dosage: 25 MG, QD
     Route: 048
     Dates: start: 20150123, end: 20150205
  4. BLOSTAR M [Concomitant]
  5. LAMICTAL [Suspect]
     Active Substance: LAMOTRIGINE
     Indication: EPILEPSY
     Dosage: 25 MG, QOD
     Route: 048
     Dates: start: 20150106, end: 20150122
  6. DEPAKENE [Concomitant]
     Active Substance: VALPROIC ACID
     Indication: EPILEPSY
     Dosage: 1200 MG, 1D
     Dates: end: 20150205
  7. ALABEL [Concomitant]
     Active Substance: AMINOLEVULINIC ACID HYDROCHLORIDE

REACTIONS (11)
  - Skin oedema [Unknown]
  - Generalised erythema [Recovering/Resolving]
  - Epidermal necrosis [Unknown]
  - Skin degenerative disorder [Unknown]
  - Pyrexia [Recovering/Resolving]
  - Erythema multiforme [Recovered/Resolved]
  - Drug eruption [Recovered/Resolved]
  - Lymphocytic infiltration [Unknown]
  - Dermatitis [Unknown]
  - Drug eruption [Recovered/Resolved]
  - Eczema [Unknown]

NARRATIVE: CASE EVENT DATE: 20150205
